FAERS Safety Report 7755773-7 (Version None)
Quarter: 2011Q3

REPORT INFORMATION
  Report Type: 
  Country: None (occurrence: None)
  Receive Date: 20110916
  Receipt Date: 20110914
  Transmission Date: 20111222
  Serious: Yes (Death)
  Sender: FDA-Public Use
  Company Number: PHHY2011NL65329

PATIENT
  Sex: Male

DRUGS (2)
  1. ZOMETA [Suspect]
     Dosage: 04 MG/05 ML CONCENTRATE FOR SOLUTION FOR IV INFUSION
     Dates: start: 20110603
  2. ZOMETA [Suspect]
     Indication: PROSTATE CANCER METASTATIC
     Dosage: 04 MG/05 ML CONCENTRATE FOR SOLUTION FOR IV INFUSION
     Dates: start: 20101230

REACTIONS (2)
  - MALAISE [None]
  - DEATH [None]
